FAERS Safety Report 12191318 (Version 1)
Quarter: 2016Q1

REPORT INFORMATION
  Report Type: Spontaneous
  Country: US (occurrence: US)
  Receive Date: 20160318
  Receipt Date: 20160318
  Transmission Date: 20160526
  Serious: No
  Sender: FDA-Public Use
  Company Number: US-WARNER CHILCOTT, LLC-1049300

PATIENT
  Age: 57 Year
  Sex: Female

DRUGS (3)
  1. LO LOESTRIN FE [Suspect]
     Active Substance: ETHINYL ESTRADIOL\NORETHINDRONE ACETATE
     Indication: VULVOVAGINAL DRYNESS
     Route: 067
     Dates: start: 201505, end: 2015
  2. PLATINUM [Concomitant]
     Active Substance: PLATINUM
  3. ESTRADIOL. [Concomitant]
     Active Substance: ESTRADIOL

REACTIONS (2)
  - Wrong technique in product usage process [None]
  - Dysuria [Recovering/Resolving]

NARRATIVE: CASE EVENT DATE: 201505
